FAERS Safety Report 9892187 (Version 1)
Quarter: 2014Q1

REPORT INFORMATION
  Report Type: Spontaneous
  Country: SE (occurrence: SE)
  Receive Date: 20140212
  Receipt Date: 20140212
  Transmission Date: 20141002
  Serious: Yes (Hospitalization)
  Sender: FDA-Public Use
  Company Number: SE-UCBSA-111819

PATIENT
  Age: 81 Year
  Sex: Male

DRUGS (2)
  1. KEPPRA [Suspect]
     Indication: PARTIAL SEIZURES
     Dates: start: 20130930, end: 20131008
  2. WARAN [Concomitant]
     Indication: ATRIAL FIBRILLATION
     Dosage: AS PRESCRIBED

REACTIONS (3)
  - Anxiety [Unknown]
  - Sleep disorder [Unknown]
  - Chest pain [Unknown]
